FAERS Safety Report 10670438 (Version 1)
Quarter: 2014Q4

REPORT INFORMATION
  Report Type: Report from Study
  Country: DE (occurrence: None)
  Receive Date: 20141218
  Receipt Date: 20141218
  Transmission Date: 20150529
  Serious: Yes (Hospitalization)
  Sender: FDA-Public Use
  Company Number: 20142492

PATIENT
  Age: 71 Year
  Sex: Male

DRUGS (2)
  1. METEX (METHOTREXATE) [Suspect]
     Active Substance: METHOTREXATE
     Indication: PSORIASIS
     Dosage: SOLUTION FOR INJECTION IN PRE-FILLED SYRINGE //SUBCUTANEOUS
     Route: 058
     Dates: start: 20140507, end: 20141015
  2. FOLIC ACID (FOLIC ACID) [Concomitant]
     Active Substance: FOLIC ACID

REACTIONS (2)
  - Night sweats [None]
  - Papillary cystadenoma lymphomatosum [None]

NARRATIVE: CASE EVENT DATE: 20141013
